FAERS Safety Report 4951477-4 (Version None)
Quarter: 2006Q1

REPORT INFORMATION
  Report Type: 
  Country: None (occurrence: None)
  Receive Date: 20060317
  Receipt Date: 20060309
  Transmission Date: 20060701
  Serious: Yes (Death)
  Sender: FDA-Public Use
  Company Number: 2006-03-0551

PATIENT
  Age: 53 Year
  Sex: Male

DRUGS (2)
  1. PEG-INTRON [Suspect]
     Dates: start: 20040719, end: 20060106
  2. REBETOL [Suspect]
     Dosage: ORAL
     Route: 048
     Dates: start: 20040719, end: 20060106

REACTIONS (1)
  - MYOCARDIAL INFARCTION [None]
